FAERS Safety Report 4688228-7 (Version None)
Quarter: 2005Q2

REPORT INFORMATION
  Report Type: 
  Country: None (occurrence: None)
  Receive Date: 20050609
  Receipt Date: 20050531
  Transmission Date: 20051028
  Serious: Yes (Hospitalization, Disabling)
  Sender: FDA-Public Use
  Company Number: TPA2005A00625

PATIENT
  Age: 65 Year
  Sex: Female
  Weight: 82.5547 kg

DRUGS (8)
  1. ACTOS [Suspect]
     Indication: DIABETES MELLITUS
     Dosage: PER ORAL
     Route: 048
     Dates: start: 19990101
  2. HUMALOG MIX 75/25 [Suspect]
     Dates: start: 20020101
  3. HUMALOG [Suspect]
     Dates: start: 20000101, end: 20020101
  4. METFORMIN HCL [Suspect]
     Indication: DIABETES MELLITUS
  5. VIOXX [Suspect]
  6. PLAVIX [Concomitant]
  7. POTASSIUM CHLORIDE [Concomitant]
  8. LASIX [Concomitant]

REACTIONS (5)
  - BLADDER DISORDER [None]
  - CEREBROVASCULAR ACCIDENT [None]
  - DIABETIC COMA [None]
  - LOSS OF CONSCIOUSNESS [None]
  - MYOCARDIAL INFARCTION [None]
